FAERS Safety Report 20534866 (Version 1)
Quarter: 2022Q1

REPORT INFORMATION
  Report Type: Spontaneous
  Country: GB (occurrence: GB)
  Receive Date: 20220302
  Receipt Date: 20220302
  Transmission Date: 20220424
  Serious: Yes (Disabling)
  Sender: FDA-Public Use
  Company Number: None

PATIENT
  Sex: Female

DRUGS (1)
  1. OVEX [Suspect]
     Active Substance: MEBENDAZOLE
     Indication: Enterobiasis
     Route: 065
     Dates: start: 202202

REACTIONS (2)
  - Suppressed lactation [Unknown]
  - Maternal exposure during breast feeding [Unknown]
